FAERS Safety Report 5702606-6 (Version None)
Quarter: 2008Q2

REPORT INFORMATION
  Report Type: 
  Country: None (occurrence: None)
  Receive Date: 20080411
  Receipt Date: 20080402
  Transmission Date: 20081010
  Serious: Yes (Hospitalization)
  Sender: FDA-Public Use
  Company Number: US-ELI_LILLY_AND_COMPANY-US200804000612

PATIENT
  Sex: Female

DRUGS (4)
  1. HUMALOG [Suspect]
  2. COREG [Concomitant]
  3. LISINOPRIL [Concomitant]
  4. PLAVIX [Concomitant]

REACTIONS (5)
  - FALL [None]
  - GAIT DISTURBANCE [None]
  - HIP FRACTURE [None]
  - MOVEMENT DISORDER [None]
  - PAIN [None]
